FAERS Safety Report 6139022-1 (Version None)
Quarter: 2009Q1

REPORT INFORMATION
  Report Type: 
  Country: None (occurrence: None)
  Receive Date: 20090327
  Receipt Date: 20090316
  Transmission Date: 20090719
  Serious: Yes (Other)
  Sender: FDA-Public Use
  Company Number: 230017M09DEU

PATIENT
  Age: 46 Year
  Sex: Male
  Weight: 80 kg

DRUGS (4)
  1. REBIF [Suspect]
     Indication: MULTIPLE SCLEROSIS
     Dosage: 44 MCG, 3 IN 1 WEEKS, SUBCUTANEOUS 22 MCG, 3 IN 1 WEEKS, SUBCUTANEOUS
     Route: 058
     Dates: start: 20060807, end: 20090305
  2. REBIF [Suspect]
     Indication: MULTIPLE SCLEROSIS
     Dosage: 44 MCG, 3 IN 1 WEEKS, SUBCUTANEOUS 22 MCG, 3 IN 1 WEEKS, SUBCUTANEOUS
     Route: 058
     Dates: start: 20040730
  3. BISOPROLOL (BISOPROLOL /00802601/) [Concomitant]
  4. IBUPROFEN [Concomitant]

REACTIONS (3)
  - HEADACHE [None]
  - PAIN IN EXTREMITY [None]
  - THROMBOCYTOPENIA [None]
